FAERS Safety Report 10289647 (Version 2)
Quarter: 2015Q4

REPORT INFORMATION
  Report Type: Spontaneous
  Country: US (occurrence: None)
  Receive Date: 20120817
  Receipt Date: 20151009
  Transmission Date: 20160304
  Serious: Yes (Life-Threatening, Hospitalization, Other)
  Sender: FDA-Public Use
  Company Number: ADR-2011-10650

PATIENT
  Age: 48 Year
  Sex: Male

DRUGS (2)
  1. MORPHINE INTRATHECAL (60 MG/ML) [Suspect]
     Active Substance: MORPHINE
  2. BACLOFEN INTRATHECAL (45 MCG/ML) [Suspect]
     Active Substance: BACLOFEN

REACTIONS (6)
  - Injection site pain [None]
  - Injection site hypoaesthesia [None]
  - Malaise [None]
  - Overdose [None]
  - Paraesthesia [None]
  - Incorrect route of drug administration [None]
